FAERS Safety Report 10742301 (Version 1)
Quarter: 2015Q1

REPORT INFORMATION
  Report Type: Spontaneous
  Country: US (occurrence: None)
  Receive Date: 20150123
  Receipt Date: 20150123
  Transmission Date: 20150721
  Serious: Yes (Other)
  Sender: FDA-Public Use
  Company Number: None

PATIENT
  Age: 57 Year
  Sex: Male
  Weight: 78.02 kg

DRUGS (4)
  1. TAMSULOSIN [Suspect]
     Active Substance: TAMSULOSIN
     Indication: URINARY RETENTION
     Route: 048
     Dates: start: 20141204, end: 20141220
  2. TAMSULOSIN [Suspect]
     Active Substance: TAMSULOSIN
     Indication: DYSURIA
     Route: 048
     Dates: start: 20141204, end: 20141220
  3. ALIVE MULTI-VITAMIN [Concomitant]
  4. TAMSULOSIN [Suspect]
     Active Substance: TAMSULOSIN
     Indication: PROSTATOMEGALY
     Route: 048
     Dates: start: 20141204, end: 20141220

REACTIONS (16)
  - Angina pectoris [None]
  - Dysphagia [None]
  - Unevaluable event [None]
  - Feeling abnormal [None]
  - Dizziness [None]
  - Vitreous floaters [None]
  - Asthenia [None]
  - Heart rate irregular [None]
  - Vision blurred [None]
  - Anxiety [None]
  - Musculoskeletal stiffness [None]
  - Syncope [None]
  - Chest discomfort [None]
  - Eye disorder [None]
  - Insomnia [None]
  - Visual impairment [None]

NARRATIVE: CASE EVENT DATE: 20141204
